FAERS Safety Report 8209379-6 (Version None)
Quarter: 2012Q1

REPORT INFORMATION
  Report Type: 
  Country: None (occurrence: None)
  Receive Date: 20120314
  Receipt Date: 20120302
  Transmission Date: 20120608
  Serious: Yes (Death, Life-Threatening, Hospitalization, Other)
  Sender: FDA-Public Use
  Company Number: KR-BAYER-2011-009896

PATIENT
  Age: 48 Year
  Sex: Male
  Weight: 67 kg

DRUGS (141)
  1. SORAFENIB (RAF KINASE INHIBITOR) [Suspect]
     Dosage: 200 MG, QD
     Route: 048
     Dates: start: 20110103, end: 20110103
  2. TRAMACET [PARACETAMOL,TRAMADOL] [Concomitant]
     Indication: ABDOMINAL PAIN
     Dosage: 37.5 MG, TID
     Route: 048
     Dates: start: 20101207, end: 20101214
  3. TRAMACET [PARACETAMOL,TRAMADOL] [Concomitant]
     Dosage: 37.5 MG, BID
     Route: 048
     Dates: start: 20101217, end: 20101217
  4. PANTOPRAZOLE SODIUM [Concomitant]
     Indication: GASTRITIS
     Dosage: 40 MG, QD
     Route: 042
     Dates: start: 20101213, end: 20101214
  5. PANTOPRAZOLE SODIUM [Concomitant]
     Dosage: 40 MG, QD
     Route: 042
     Dates: start: 20110404, end: 20110404
  6. VITAMIN K1 [Concomitant]
     Dosage: 10 MG, QD
     Route: 030
     Dates: start: 20101216, end: 20101216
  7. ACETYLCYSTEINE [Concomitant]
     Indication: SURGERY
     Dosage: 2 ML, BID
     Route: 042
     Dates: start: 20101215, end: 20101215
  8. ACETYLCYSTEINE [Concomitant]
     Dosage: 2 ML, TID
     Route: 042
     Dates: start: 20101216, end: 20101216
  9. BOTROPASE [Concomitant]
     Dosage: 2 ML, UNK
     Route: 042
     Dates: start: 20110130
  10. LIDOCAINE [Concomitant]
     Dosage: UNK UNK, QD
     Route: 058
     Dates: start: 20110129, end: 20110129
  11. GLAMIN [Concomitant]
     Indication: MEDICAL DIET
     Dosage: 500 ML, QD
     Route: 042
     Dates: start: 20101216, end: 20101216
  12. ACETYLCYSTEINE [Concomitant]
     Indication: PROPHYLAXIS
     Dosage: 200 MG, QD
     Route: 048
     Dates: start: 20101220, end: 20101220
  13. PRIMOVIST [Concomitant]
     Indication: NUCLEAR MAGNETIC RESONANCE IMAGING
     Dosage: 10 CC, QD
     Route: 042
     Dates: start: 20101213, end: 20101213
  14. TRAMADOL HCL [Concomitant]
     Dosage: 50 MG, QD
     Route: 030
     Dates: start: 20110129, end: 20110129
  15. ULTRAVIST 150 [Concomitant]
     Indication: NUCLEAR MAGNETIC RESONANCE IMAGING
     Dosage: 140 ML, QD
     Route: 042
     Dates: start: 20101221, end: 20101221
  16. ULTRAVIST 150 [Concomitant]
     Dosage: 140 ML, UNK
     Route: 042
     Dates: start: 20110201, end: 20110201
  17. PETHIDINE HCL [Concomitant]
     Indication: ABDOMINAL PAIN
     Dosage: 50 MG, BID
     Route: 042
     Dates: start: 20110129, end: 20110129
  18. ALBIS [Concomitant]
     Dosage: 50 MG, QD
     Route: 042
     Dates: start: 20110215, end: 20110215
  19. LEVOVIR [Concomitant]
     Dosage: 30 MG, QD
     Route: 048
     Dates: start: 20101221, end: 20110128
  20. TRAMACET [PARACETAMOL,TRAMADOL] [Concomitant]
     Dosage: 37.5 MG, TID
     Route: 048
     Dates: start: 20101218, end: 20101219
  21. PANTOPRAZOLE SODIUM [Concomitant]
     Indication: OESOPHAGITIS
     Dosage: 40 MG, QD
     Route: 042
     Dates: start: 20101204, end: 20101211
  22. DURAGESIC-100 [Concomitant]
     Indication: LIVER CARCINOMA RUPTURED
     Dosage: 25 ?G, BIW
     Dates: start: 20101221, end: 20101223
  23. FAMOTIDINE [Concomitant]
     Indication: SURGERY
     Dosage: 20 MG, BID
     Route: 042
     Dates: start: 20101215, end: 20101216
  24. MEICELIN [Concomitant]
     Indication: SURGERY
     Dosage: 1 G, TID
     Route: 042
     Dates: start: 20101215, end: 20101216
  25. ORNITHINE ASPARTATE [Concomitant]
     Indication: SURGERY
     Dosage: 20 ML, QD
     Route: 042
     Dates: start: 20101215, end: 20101216
  26. BROMEL [Concomitant]
     Indication: SURGERY
     Dosage: 2.2 ML, BID
     Route: 042
     Dates: start: 20101215, end: 20101215
  27. BROMEL [Concomitant]
     Dosage: 2.2 ML, TID
     Route: 042
     Dates: start: 20101216, end: 20101216
  28. PYRIDOSTIGMINE BROMIDE [Concomitant]
     Indication: SURGERY
     Dosage: 20 MG, QD
     Route: 042
     Dates: start: 20101215, end: 20101215
  29. GLYCOPYRROLATE [Concomitant]
     Indication: SURGERY
     Dosage: 0.4 MG, QD
     Route: 042
     Dates: start: 20101215, end: 20101215
  30. PROPOFOL [Concomitant]
     Indication: ENDOSCOPY
     Dosage: 80 MG, QD
     Route: 042
     Dates: start: 20110208, end: 20110208
  31. CEFOTAXIME [Concomitant]
     Indication: SURGERY
     Dosage: 1 G, BID
     Route: 042
     Dates: start: 20101217, end: 20101217
  32. TRAMADOL HCL [Concomitant]
     Dosage: 50 MG, BID
     Route: 030
     Dates: start: 20110130
  33. NUTRIFLEX LIPID [AMINO ACIDS NOS,CARBOHYDRATES NOS,ELECTROLYTES NO [Concomitant]
     Indication: MEDICAL DIET
     Dosage: 1.250 ML, QD
     Route: 042
     Dates: start: 20101220, end: 20101220
  34. LIVACT [AMINO ACIDS NOS] [Concomitant]
     Dosage: 4.15 G, TID
     Route: 048
     Dates: start: 20110113, end: 20110126
  35. NORVASC [Concomitant]
     Indication: PROPHYLAXIS
     Dosage: 5 MG, QD
     Route: 048
     Dates: start: 20110106, end: 20110110
  36. ADALAT [Concomitant]
     Dosage: 30 MG, QD
     Route: 048
     Dates: start: 20110131
  37. LASIX [Concomitant]
     Indication: HYPOALBUMINAEMIA
     Dosage: 1 ML, QD
     Route: 042
     Dates: start: 20110129, end: 20110129
  38. MORPHINE SULFATE [Concomitant]
     Dosage: 5 MG, QD
     Route: 042
     Dates: start: 20110426, end: 20110426
  39. ALDACTONE [Concomitant]
     Dosage: 25 MG, QD
     Route: 048
     Dates: start: 20110414, end: 20110414
  40. MEGESTROL ACETATE [Concomitant]
     Dosage: 20 ML, QD
     Route: 048
     Dates: start: 20110415, end: 20110425
  41. MEK INHIBITOR (DIHYDROXYPROP-DIFLU-METHOXYPHEN-CYCLOPROPA-SULFAMI) [Suspect]
     Dosage: 50 MG, BID
     Route: 048
     Dates: start: 20110225, end: 20110302
  42. SORAFENIB (RAF KINASE INHIBITOR) [Suspect]
     Dosage: 600 MG (200 MG/400 MG), QD
     Route: 048
     Dates: start: 20101231, end: 20110102
  43. SORAFENIB (RAF KINASE INHIBITOR) [Suspect]
  44. GASMOTIN [Concomitant]
     Dosage: 5 MG, TID
     Route: 048
     Dates: start: 20101218, end: 20101219
  45. PANTOPRAZOLE SODIUM [Concomitant]
     Dosage: 40 MG, QD
     Route: 042
     Dates: start: 20110129
  46. LAMINA-G [Concomitant]
     Dosage: 50 ML, TID
     Route: 048
     Dates: start: 20101221, end: 20101223
  47. DURAGESIC-100 [Concomitant]
     Indication: ABDOMINAL PAIN
     Dosage: 12.5 ?G, QD
     Dates: start: 20101213, end: 20101213
  48. VALIUM [Concomitant]
     Indication: SURGERY
     Dosage: 5 MG, QD
     Route: 048
     Dates: start: 20101214, end: 20101214
  49. VITAMIN K1 [Concomitant]
     Indication: SURGERY
     Dosage: 10 MG, BID
     Route: 030
     Dates: start: 20101215, end: 20101215
  50. CEFOTAXIME [Concomitant]
     Dosage: 1 G, QD
     Route: 042
     Dates: start: 20101218, end: 20101218
  51. ULTRAVIST 150 [Concomitant]
     Dosage: 140 ML, QD
     Route: 042
     Dates: start: 20110215, end: 20110215
  52. ALLEGRA [Concomitant]
     Indication: PALMAR-PLANTAR ERYTHRODYSAESTHESIA SYNDROME
     Dosage: 120 MG, BID
     Route: 048
     Dates: start: 20110113, end: 20110128
  53. SILYMARIN [Concomitant]
     Indication: MEDICAL DIET
     Dosage: 500 ML, QD
     Route: 042
     Dates: start: 20110130
  54. RIFAXIMIN [Concomitant]
     Dosage: 400 MG, Q2HR
     Route: 054
     Dates: start: 20110426, end: 20110427
  55. ALMAGEL F [Concomitant]
     Indication: GASTRITIS
     Dosage: 15 ML, TID
     Route: 048
     Dates: start: 20110407, end: 20110425
  56. KALIMATE [Concomitant]
     Indication: HYPERKALAEMIA
     Dosage: 10 G, TID
     Route: 054
     Dates: start: 20110414, end: 20110427
  57. KALIMATE [Concomitant]
     Indication: HEPATIC FAILURE
     Dosage: 10 G, Q2HR
     Route: 054
     Dates: start: 20110426, end: 20110427
  58. MEK INHIBITOR (DIHYDROXYPROP-DIFLU-METHOXYPHEN-CYCLOPROPA-SULFAMI) [Suspect]
     Dosage: 50 MG, BID
     Route: 048
     Dates: start: 20101231, end: 20110128
  59. MEK INHIBITOR (DIHYDROXYPROP-DIFLU-METHOXYPHEN-CYCLOPROPA-SULFAMI) [Suspect]
     Dosage: 30 MG, QD
     Dates: start: 20110304, end: 20110324
  60. SORAFENIB (RAF KINASE INHIBITOR) [Suspect]
     Dosage: 400 MG, BID
     Route: 048
     Dates: start: 20110128, end: 20110128
  61. SORAFENIB (RAF KINASE INHIBITOR) [Suspect]
     Dosage: 400 MG, QD
     Route: 048
     Dates: start: 20110224, end: 20110224
  62. LEVOVIR [Concomitant]
     Indication: HEPATITIS B
     Dosage: 30 MG, QD
     Route: 048
     Dates: start: 20101207, end: 20101214
  63. DURAGESIC-100 [Concomitant]
     Dosage: 50 ?G, Q72HR
     Route: 062
     Dates: start: 20110403, end: 20110430
  64. ACETYLCYSTEINE [Concomitant]
     Dosage: 200 MG, TID
     Route: 048
     Dates: start: 20101218, end: 20101219
  65. NORVASC [Concomitant]
     Indication: HYPERTENSION
     Dosage: 5 MG, QD
     Route: 048
     Dates: start: 20110103, end: 20110104
  66. MORPHINE SULFATE [Concomitant]
     Dosage: 1 MG, Q1HR
     Route: 042
     Dates: start: 20110427, end: 20110430
  67. ACTIQ [Concomitant]
     Dosage: 0.6 MG, TID
     Route: 048
     Dates: start: 20110401, end: 20110425
  68. MEK INHIBITOR (DIHYDROXYPROP-DIFLU-METHOXYPHEN-CYCLOPROPA-SULFAMI) [Suspect]
     Dosage: 30 MG, BID
     Dates: start: 20110304, end: 20110323
  69. SORAFENIB (RAF KINASE INHIBITOR) [Suspect]
     Dosage: 200 MG, QD
     Route: 048
     Dates: start: 20110111, end: 20110111
  70. ALBIS [Concomitant]
     Dosage: 1 DF, BID
     Route: 048
     Dates: start: 20101218, end: 20101219
  71. GASMOTIN [Concomitant]
     Indication: OESOPHAGITIS
     Dosage: 5 MG, TID
     Route: 048
     Dates: start: 20101207, end: 20101214
  72. PANTOPRAZOLE SODIUM [Concomitant]
     Indication: NAUSEA
     Dosage: 20 MG, QD
     Route: 042
     Dates: start: 20110113, end: 20110128
  73. LAMINA-G [Concomitant]
     Dosage: 50 ML, QD
     Route: 048
     Dates: start: 20101220, end: 20101220
  74. METOCLOPRAMIDE HYDROCHLORIDE [Concomitant]
     Indication: OESOPHAGITIS
     Dosage: 10 MG, QD
     Route: 042
     Dates: start: 20101214, end: 20101214
  75. BOTROPASE [Concomitant]
     Indication: SURGERY
     Dosage: 2 ML, BID
     Route: 042
     Dates: start: 20101215, end: 20101215
  76. LIDOCAINE [Concomitant]
     Indication: SURGERY
     Dosage: UNK UNK, QD
     Route: 061
     Dates: start: 20101215, end: 20101215
  77. CEFOTAXIME [Concomitant]
     Dosage: 2 G, TID
     Route: 042
     Dates: start: 20101218, end: 20101221
  78. TRAMADOL HCL [Concomitant]
     Indication: ABDOMINAL PAIN
     Dosage: 50 MG, TID
     Route: 042
     Dates: start: 20101220, end: 20101220
  79. DUPHALAC [Concomitant]
     Indication: PROPHYLAXIS
     Dosage: 30 ML, BID
     Route: 050
     Dates: start: 20110130
  80. DUPHALAC [Concomitant]
     Indication: HEPATIC FAILURE
     Dosage: 15 ML, Q2HR
     Route: 054
     Dates: start: 20110426, end: 20110430
  81. RIFAXIMIN [Concomitant]
     Indication: PROPHYLAXIS
     Dosage: 400 MG, BID
     Route: 050
     Dates: start: 20110130
  82. MORPHINE SULFATE [Concomitant]
     Dosage: 0.75 MG, Q1HR
     Route: 042
     Dates: start: 20110403, end: 20110404
  83. NALOXONE [Concomitant]
     Indication: MUSCULAR WEAKNESS
     Dosage: 0.2 MG, QD
     Route: 042
     Dates: start: 20110227, end: 20110227
  84. METOCLOPRAMIDE HYDROCHLORIDE [Concomitant]
     Indication: NAUSEA
     Dosage: 10 MG, QD
     Route: 042
     Dates: start: 20110406, end: 20110423
  85. MEK INHIBITOR (DIHYDROXYPROP-DIFLU-METHOXYPHEN-CYCLOPROPA-SULFAMI) [Suspect]
     Indication: HEPATIC NEOPLASM MALIGNANT
     Dosage: 50 MG, QD
     Route: 048
     Dates: start: 20101230, end: 20101230
  86. MEK INHIBITOR (DIHYDROXYPROP-DIFLU-METHOXYPHEN-CYCLOPROPA-SULFAMI) [Suspect]
     Dosage: 50/30 MG, QD
     Route: 048
     Dates: start: 20110303, end: 20110303
  87. SORAFENIB (RAF KINASE INHIBITOR) [Suspect]
     Dosage: 400 MG, QD
     Route: 048
     Dates: start: 20110113, end: 20110127
  88. SORAFENIB (RAF KINASE INHIBITOR) [Suspect]
     Dosage: 400 MG, BID
     Route: 048
     Dates: start: 20110225, end: 20110302
  89. SORAFENIB (RAF KINASE INHIBITOR) [Suspect]
     Dosage: 400 MG, QD
     Route: 048
     Dates: start: 20110303, end: 20110323
  90. ALBIS [Concomitant]
     Indication: OESOPHAGITIS
     Dosage: 1 DF, BID
     Route: 048
     Dates: start: 20101207, end: 20101214
  91. ALBIS [Concomitant]
     Dosage: 1 DF, BID
     Route: 048
     Dates: start: 20101221, end: 20110128
  92. MULTI-VITAMINS [Concomitant]
     Dosage: 1 DF, QD
     Route: 048
     Dates: start: 20101221, end: 20110128
  93. PANTOPRAZOLE SODIUM [Concomitant]
     Dosage: 40 MG, QD
     Route: 042
     Dates: start: 20110215
  94. TYLENOL EXTENDED RELIEF [Concomitant]
     Indication: HEADACHE
     Dosage: 1300 MG, QD
     Route: 048
     Dates: start: 20101212, end: 20101213
  95. CASTOR OIL [Concomitant]
     Indication: SURGERY
     Dosage: 50 ML, QD
     Route: 048
     Dates: start: 20101214, end: 20101214
  96. FOY [Concomitant]
     Indication: SURGERY
     Dosage: 1500 MG, QD
     Route: 042
     Dates: start: 20101214, end: 20101214
  97. ADELAVIN [Concomitant]
     Indication: SURGERY
     Dosage: 2 ML, QD
     Route: 042
     Dates: start: 20101215, end: 20101216
  98. BOTROPASE [Concomitant]
     Dosage: 2 ML, BID
     Route: 042
     Dates: start: 20110129, end: 20110129
  99. PROPOFOL [Concomitant]
     Indication: SURGERY
     Dosage: 120 MG, QD
     Route: 042
     Dates: start: 20101215, end: 20101215
  100. DIPEPTIVEN [Concomitant]
     Indication: MEDICAL DIET
     Dosage: 100 ML, QD
     Route: 042
     Dates: start: 20101216, end: 20101216
  101. PETHIDINE HCL [Concomitant]
     Indication: LIVER CARCINOMA RUPTURED
     Dosage: 25 MG, QD
     Route: 042
     Dates: start: 20110331, end: 20110331
  102. MORPHINE SULFATE [Concomitant]
     Indication: HEPATIC FAILURE
     Dosage: 1 MG, Q1HR
     Route: 042
     Dates: start: 20110331, end: 20110402
  103. MORPHINE SULFATE [Concomitant]
     Dosage: 0.5 MG, Q1HR
     Route: 042
     Dates: start: 20110405, end: 20110406
  104. HEPATAMINE [Concomitant]
     Indication: MEDICAL DIET
     Dosage: 500 ML, QD
     Route: 042
     Dates: start: 20110215
  105. HEPATAMINE [Concomitant]
     Dosage: 500 ML, QD
     Route: 042
     Dates: start: 20110427, end: 20110427
  106. MEK INHIBITOR (DIHYDROXYPROP-DIFLU-METHOXYPHEN-CYCLOPROPA-SULFAMI) [Suspect]
     Dosage: 50 MG, QD
     Route: 048
     Dates: start: 20110224, end: 20110224
  107. SORAFENIB (RAF KINASE INHIBITOR) [Suspect]
     Dosage: 400 MG, QD
     Route: 048
     Dates: start: 20110106, end: 20110110
  108. ALBIS [Concomitant]
     Indication: GASTRITIS
     Dosage: 1 DF, QD
     Route: 048
     Dates: start: 20101217, end: 20101217
  109. GASMOTIN [Concomitant]
     Dosage: 5 MG, QD
     Route: 048
     Dates: start: 20101220, end: 20101220
  110. GASMOTIN [Concomitant]
     Dosage: 5 MG, TID
     Route: 048
     Dates: start: 20110106, end: 20110126
  111. GASMOTIN [Concomitant]
     Dosage: 5 MG, BID
     Route: 048
     Dates: start: 20110127, end: 20110128
  112. LEVOVIR [Concomitant]
     Dosage: 30 MG, QD
     Route: 048
     Dates: start: 20101217, end: 20101219
  113. MULTI-VITAMINS [Concomitant]
     Indication: MEDICAL DIET
     Dosage: 1 DF, QD
     Route: 048
     Dates: start: 20101207, end: 20101214
  114. LAMINA-G [Concomitant]
     Indication: OESOPHAGITIS
     Dosage: 40 ML, TID
     Route: 048
     Dates: start: 20101209, end: 20101214
  115. MIDAZOLAM [Concomitant]
     Indication: SURGERY
     Dosage: 3 MG, QD
     Route: 030
     Dates: start: 20101215, end: 20101215
  116. KETORACIN [Concomitant]
     Indication: ABDOMINAL PAIN
     Dosage: 30 MG, QD
     Route: 042
     Dates: start: 20101215, end: 20101216
  117. ACETYLCYSTEINE [Concomitant]
     Dosage: 200 MG, TID
     Route: 048
     Dates: start: 20101221, end: 20101229
  118. ULTRAVIST 150 [Concomitant]
     Dosage: 140 ML, QD
     Route: 042
     Dates: start: 20110129, end: 20110129
  119. LIVACT [AMINO ACIDS NOS] [Concomitant]
     Dosage: 4.15 G, BID
     Route: 048
     Dates: start: 20110106, end: 20110112
  120. NORVASC [Concomitant]
     Dosage: 5 MG, QD
     Route: 048
     Dates: start: 20110113, end: 20110128
  121. ALBUMIN (HUMAN) [Concomitant]
     Indication: HYPOALBUMINAEMIA
     Dosage: 100 ML, QD
     Route: 042
     Dates: start: 20110129
  122. MORPHINE SULFATE [Concomitant]
     Indication: LIVER CARCINOMA RUPTURED
     Dosage: 5 MG, QD
     Route: 042
     Dates: start: 20110215
  123. ACTIQ [Concomitant]
     Indication: LIVER CARCINOMA RUPTURED
     Dosage: 0.2 MG, QD
     Route: 048
     Dates: start: 20110228, end: 20110310
  124. OCODONE CR [Concomitant]
     Indication: LIVER CARCINOMA RUPTURED
     Dosage: 110 MG, BID
     Route: 048
     Dates: start: 20110403, end: 20110406
  125. INDENOLOL [Concomitant]
     Dosage: 10 MG, BID
     Route: 048
     Dates: start: 20110410, end: 20110415
  126. SORAFENIB (RAF KINASE INHIBITOR) [Suspect]
     Indication: HEPATIC NEOPLASM MALIGNANT
     Dosage: 200 MG, QD
     Route: 048
     Dates: start: 20101230, end: 20101230
  127. SORAFENIB (RAF KINASE INHIBITOR) [Suspect]
     Dosage: UNK
  128. GASMOTIN [Concomitant]
     Dosage: 5 MG, BID
     Route: 048
     Dates: start: 20101217, end: 20101217
  129. GASMOTIN [Concomitant]
     Dosage: 5 MG, TID
     Route: 048
     Dates: start: 20101221, end: 20101229
  130. MULTI-VITAMINS [Concomitant]
     Dosage: 1 DF, QD
     Route: 048
     Dates: start: 20101217, end: 20101219
  131. DURAGESIC-100 [Concomitant]
     Dosage: 25 ?G, Q72HR
     Route: 062
     Dates: start: 20110405, end: 20110422
  132. FENTANYL CITRATE [Concomitant]
     Indication: SURGERY
     Dosage: 0.1 MG, QD
     Route: 042
     Dates: start: 20101215, end: 20101215
  133. ROCURONIUM BROMIDE [Concomitant]
     Indication: SURGERY
     Dosage: 50 MG, QD
     Route: 042
     Dates: start: 20101215, end: 20101215
  134. LIVACT [AMINO ACIDS NOS] [Concomitant]
     Indication: PROPHYLAXIS
     Dosage: 4.15 G, TID
     Route: 048
     Dates: start: 20101230, end: 20110105
  135. LIVACT [AMINO ACIDS NOS] [Concomitant]
     Dosage: 4.15 G, BID
     Route: 048
     Dates: start: 20110127, end: 20110128
  136. SMECTA [SMECTITE] [Concomitant]
     Indication: PROPHYLAXIS
     Dosage: 20 ML, BID
     Route: 048
     Dates: start: 20101230, end: 20110112
  137. ADALAT [Concomitant]
     Indication: HYPERTENSION
     Dosage: 60 MG, QD
     Route: 048
     Dates: start: 20110130
  138. ALBUMIN (HUMAN) [Concomitant]
     Indication: PARACENTESIS
  139. CARVEDILOL [Concomitant]
     Indication: HYPERTENSION
     Dosage: 12.5 MG, UNK
     Dates: start: 20110207
  140. ACTIQ [Concomitant]
     Indication: ABDOMINAL PAIN
     Dosage: 0.2 MG, TID
     Route: 048
     Dates: start: 20110224, end: 20110227
  141. PENNEL [Concomitant]
     Indication: ASPARTATE AMINOTRANSFERASE INCREASED
     Dosage: 1 DF, TID
     Route: 048
     Dates: start: 20110302, end: 20110425

REACTIONS (6)
  - ABDOMINAL PAIN [None]
  - ASPARTATE AMINOTRANSFERASE INCREASED [None]
  - HEPATIC FAILURE [None]
  - HYPOKALAEMIA [None]
  - LIVER CARCINOMA RUPTURED [None]
  - DIARRHOEA [None]
